FAERS Safety Report 18715497 (Version 1)
Quarter: 2021Q1

REPORT INFORMATION
  Report Type: Spontaneous
  Country: CH (occurrence: CH)
  Receive Date: 20210108
  Receipt Date: 20210108
  Transmission Date: 20210419
  Serious: Yes (Other)
  Sender: FDA-Public Use
  Company Number: CH-LUPIN PHARMACEUTICALS INC.-2020-11463

PATIENT
  Age: 32 Year
  Sex: Female

DRUGS (1)
  1. BUDESONIDE. [Suspect]
     Active Substance: BUDESONIDE
     Indication: EOSINOPHILIC OESOPHAGITIS
     Dosage: 1 DOSAGE FORM, BID (ON DAY 1; ORODISPERSIBLE TABLET)
     Route: 048

REACTIONS (2)
  - Type IV hypersensitivity reaction [Recovered/Resolved]
  - Herpes simplex [Unknown]
